FAERS Safety Report 8949411 (Version 3)
Quarter: 2013Q1

REPORT INFORMATION
  Report Type: Spontaneous
  Country: US (occurrence: US)
  Receive Date: 20121206
  Receipt Date: 20130103
  Transmission Date: 20140127
  Serious: Yes (Hospitalization, Congenital Anomaly, Other)
  Sender: FDA-Public Use
  Company Number: US-PFIZER INC-2012305037

PATIENT
  Sex: Male
  Weight: 3.3 kg

DRUGS (8)
  1. ZOLOFT [Suspect]
     Indication: DEPRESSION
     Dosage: UNK
     Route: 064
     Dates: start: 2001, end: 2003
  2. PAXIL [Concomitant]
     Dosage: UNK
     Route: 064
  3. TYLENOL [Concomitant]
     Dosage: UNK
     Route: 064
  4. HYDROXYZINE [Concomitant]
     Dosage: UNK
     Route: 064
  5. IBUPROFEN [Concomitant]
     Dosage: UNK
     Route: 064
  6. LORTAB [Concomitant]
     Dosage: UNK
     Route: 064
  7. CIPRODEX [Concomitant]
     Dosage: UNK
     Route: 064
  8. KETOPROFEN [Concomitant]
     Dosage: UNK
     Route: 064

REACTIONS (5)
  - Maternal exposure timing unspecified [Unknown]
  - Epilepsy congenital [Unknown]
  - Pulmonary artery stenosis congenital [Unknown]
  - Cyanosis neonatal [Recovered/Resolved]
  - Atrial septal defect [Unknown]
